FAERS Safety Report 14002359 (Version 1)
Quarter: 2017Q3

REPORT INFORMATION
  Report Type: Spontaneous
  Country: US (occurrence: US)
  Receive Date: 20170922
  Receipt Date: 20170922
  Transmission Date: 20171128
  Serious: Yes (Death, Hospitalization)
  Sender: FDA-Public Use
  Company Number: US-JNJFOC-20170918001

PATIENT
  Age: 71 Year
  Sex: Male
  Weight: 72.1 kg

DRUGS (2)
  1. XARELTO [Suspect]
     Active Substance: RIVAROXABAN
     Indication: DEEP VEIN THROMBOSIS
     Route: 048
     Dates: start: 20150722
  2. XARELTO [Suspect]
     Active Substance: RIVAROXABAN
     Indication: DEEP VEIN THROMBOSIS
     Route: 048
     Dates: start: 20150810, end: 20150827

REACTIONS (2)
  - Haematuria [Recovering/Resolving]
  - Haemorrhoidal haemorrhage [Recovered/Resolved]

NARRATIVE: CASE EVENT DATE: 201508
